FAERS Safety Report 16091030 (Version 1)
Quarter: 2019Q1

REPORT INFORMATION
  Report Type: Spontaneous
  Country: ES (occurrence: ES)
  Receive Date: 20190319
  Receipt Date: 20190319
  Transmission Date: 20190418
  Serious: Yes (Other)
  Sender: FDA-Public Use
  Company Number: ES-BAYER-2019-022131

PATIENT
  Age: 67 Year
  Sex: Male

DRUGS (2)
  1. STIVARGA [Suspect]
     Active Substance: REGORAFENIB
     Dosage: DAILY DOSE 160 MG
     Route: 048
     Dates: start: 201406
  2. STIVARGA [Suspect]
     Active Substance: REGORAFENIB
     Dosage: DAILY DOSE 120 MG

REACTIONS (5)
  - Metastases to liver [None]
  - Carcinoembryonic antigen increased [None]
  - Palmar-plantar erythrodysaesthesia syndrome [None]
  - Disease progression [None]
  - Asthenia [None]

NARRATIVE: CASE EVENT DATE: 2014
